FAERS Safety Report 5485316-2 (Version None)
Quarter: 2007Q4

REPORT INFORMATION
  Report Type: 
  Country: None (occurrence: None)
  Receive Date: 20071015
  Receipt Date: 20070821
  Transmission Date: 20080405
  Serious: Yes (Death)
  Sender: FDA-Public Use
  Company Number: US-PURDUE-USA_2007_0029018

PATIENT
  Age: 79 Year
  Sex: Female

DRUGS (1)
  1. OXYCONTIN [Suspect]
     Indication: PAIN
     Dosage: UNK MG, UNK
     Route: 048

REACTIONS (8)
  - ANOREXIA [None]
  - CARDIAC ARREST [None]
  - COMMUNICATION DISORDER [None]
  - LETHARGY [None]
  - MENTAL IMPAIRMENT [None]
  - OVERDOSE [None]
  - PAIN [None]
  - STARING [None]
